FAERS Safety Report 19494564 (Version 2)
Quarter: 2021Q4

REPORT INFORMATION
  Report Type: Spontaneous
  Country: DE (occurrence: DE)
  Receive Date: 20210705
  Receipt Date: 20211109
  Transmission Date: 20220303
  Serious: Yes (Hospitalization)
  Sender: FDA-Public Use
  Company Number: DE-NOVARTISPH-NVSC2021DE023634

PATIENT
  Age: 71 Year
  Sex: Male
  Weight: 79 kg

DRUGS (19)
  1. DOCETAXEL [Suspect]
     Active Substance: DOCETAXEL
     Indication: Gastric cancer
     Dosage: 97.4 MG, Q2W
     Route: 042
     Dates: start: 20210111
  2. DOCETAXEL [Suspect]
     Active Substance: DOCETAXEL
     Dosage: 77.1 MG, Q2W
     Route: 042
  3. DOCETAXEL [Suspect]
     Active Substance: DOCETAXEL
     Dosage: 73.1 MG, Q2W
     Route: 042
  4. OXALIPLATIN [Suspect]
     Active Substance: OXALIPLATIN
     Indication: Gastric cancer
     Dosage: 165.6MG
     Route: 042
     Dates: start: 20210111
  5. OXALIPLATIN [Suspect]
     Active Substance: OXALIPLATIN
     Dosage: 124.2 MG
     Route: 042
  6. CAPECITABINE [Suspect]
     Active Substance: CAPECITABINE
     Indication: Gastric cancer
     Dosage: 1000 MG/M2, QD (D1-14 IN 3 WEEKLY SCHEDULE)
     Route: 048
  7. CAPECITABINE [Suspect]
     Active Substance: CAPECITABINE
     Dosage: D1-14 IN 3 WEEKLY SCHEDULE (1000 MG/M2/DAY)
     Route: 048
  8. FLUOROURACIL [Suspect]
     Active Substance: FLUOROURACIL
     Indication: Gastric cancer
     Dosage: 5064.8MG
     Route: 042
     Dates: start: 20210111
  9. FLUOROURACIL [Suspect]
     Active Substance: FLUOROURACIL
     Dosage: 3799.6 MG
     Route: 042
  10. CISPLATIN [Suspect]
     Active Substance: CISPLATIN
     Indication: Gastric cancer
     Dosage: UNK, Q3W
     Route: 042
  11. TRASTUZUMAB [Suspect]
     Active Substance: TRASTUZUMAB
     Indication: Gastric cancer
     Dosage: 840 MG, Q3W
     Route: 042
     Dates: start: 20210111
  12. TRASTUZUMAB [Suspect]
     Active Substance: TRASTUZUMAB
     Dosage: 480 MG
     Route: 042
  13. LEUCOVORIN [Suspect]
     Active Substance: LEUCOVORIN
     Indication: Gastric cancer
     Dosage: 389.6 MG, Q2W
     Route: 042
     Dates: start: 20210111
  14. LEUCOVORIN [Suspect]
     Active Substance: LEUCOVORIN
     Dosage: 292.2 MG, Q2W
     Route: 042
  15. PERTUZUMAB [Suspect]
     Active Substance: PERTUZUMAB
     Indication: Gastric cancer
     Dosage: 640 MG, Q3W
     Route: 042
     Dates: start: 20210111
  16. PERTUZUMAB [Suspect]
     Active Substance: PERTUZUMAB
     Dosage: 840 MG, TIW
     Route: 042
  17. PERTUZUMAB [Suspect]
     Active Substance: PERTUZUMAB
     Dosage: 840 MG
     Route: 042
  18. CALCIUM CHLORIDE\POTASSIUM CHLORIDE\SODIUM ACETATE [Concomitant]
     Active Substance: CALCIUM CHLORIDE\POTASSIUM CHLORIDE\SODIUM ACETATE
     Indication: Product used for unknown indication
     Dosage: 44 MG
     Route: 042
     Dates: start: 20210119, end: 20210127
  19. DIMENHYDRINATE [Concomitant]
     Active Substance: DIMENHYDRINATE
     Indication: Product used for unknown indication
     Dosage: 50MG
     Route: 048
     Dates: start: 20210123, end: 20210124

REACTIONS (2)
  - Diarrhoea [Recovered/Resolved]
  - Diarrhoea [Recovered/Resolved]

NARRATIVE: CASE EVENT DATE: 20210119
